FAERS Safety Report 8605080-5 (Version None)
Quarter: 2012Q3

REPORT INFORMATION
  Report Type: 
  Country: None (occurrence: None)
  Receive Date: 20120807
  Receipt Date: 20120725
  Transmission Date: 20120928
  Serious: Yes (Other)
  Sender: FDA-Public Use
  Company Number: 2012AP002219

PATIENT
  Sex: Female

DRUGS (3)
  1. CITALOPRAM HYDROBROMIDE [Suspect]
     Indication: ANXIETY DISORDER
     Dosage: 20 MG, QD
  2. MIRTAZAPINE [Suspect]
     Indication: ANXIETY DISORDER
     Dosage: 15;30;45 MG, HS, QD
  3. ESCITALOPRAM [Suspect]
     Indication: ANXIETY DISORDER
     Dosage: 10 MG, QD

REACTIONS (14)
  - INCREASED APPETITE [None]
  - PANIC ATTACK [None]
  - CRYING [None]
  - MATERNAL EXPOSURE DURING PREGNANCY [None]
  - OFF LABEL USE [None]
  - DYSPNOEA [None]
  - PALPITATIONS [None]
  - ANXIETY DISORDER [None]
  - MERYCISM [None]
  - POOR QUALITY SLEEP [None]
  - BLUNTED AFFECT [None]
  - URINARY RETENTION [None]
  - WEIGHT INCREASED [None]
  - DECREASED APPETITE [None]
